FAERS Safety Report 5147112-5 (Version None)
Quarter: 2006Q4

REPORT INFORMATION
  Report Type: 
  Country: None (occurrence: None)
  Receive Date: 20061103
  Receipt Date: 20061024
  Transmission Date: 20070319
  Serious: Yes (Hospitalization)
  Sender: FDA-Public Use
  Company Number: GXKR2006TR06508

PATIENT
  Age: 40 Year
  Sex: Female

DRUGS (2)
  1. RIBAVIRIN (NGX) (RIBAVIRIN)  UNKNOWN [Suspect]
     Indication: HEPATITIS C
     Dosage: 1000 MG, QD
  2. PEGINTERFERON ALFA-2A (PEGINTERFERON ALFA-2A) [Suspect]
     Indication: HEPATITIS C
     Dosage: 180 UG, QW

REACTIONS (3)
  - AUTOIMMUNE THROMBOCYTOPENIA [None]
  - GINGIVAL BLEEDING [None]
  - PETECHIAE [None]
